FAERS Safety Report 7965888-6 (Version None)
Quarter: 2011Q4

REPORT INFORMATION
  Report Type: 
  Country: None (occurrence: None)
  Receive Date: 20111208
  Receipt Date: 20111201
  Transmission Date: 20120403
  Serious: Yes (Hospitalization)
  Sender: FDA-Public Use
  Company Number: US-GLAXOSMITHKLINE-A0956968A

PATIENT
  Age: 46 Year
  Sex: Female
  Weight: 100.7 kg

DRUGS (6)
  1. MEDROL [Suspect]
     Indication: ASTHMA
     Dates: start: 20111030
  2. BLINDED TRIAL MEDICATION [Concomitant]
     Indication: ASTHMA
     Dates: start: 20111020, end: 20111028
  3. METHYLPREDNISOLONE SODIUM SUCCINATE [Suspect]
     Indication: ASTHMA
     Dates: start: 20111031, end: 20111102
  4. ADVAIR DISKUS 100/50 [Suspect]
     Indication: ASTHMA
     Dosage: 1PUFF TWICE PER DAY
     Route: 055
     Dates: start: 20111028
  5. LEVALBUTEROL HCL [Suspect]
     Indication: ASTHMA
     Dosage: 1.25NEB AS REQUIRED
     Dates: start: 20111031, end: 20111102
  6. SINGULAIR [Suspect]
     Indication: ASTHMA
     Dates: start: 20111028

REACTIONS (2)
  - ASTHMA [None]
  - CONDITION AGGRAVATED [None]
